FAERS Safety Report 4612386-3 (Version None)
Quarter: 2005Q1

REPORT INFORMATION
  Report Type: 
  Country: None (occurrence: None)
  Receive Date: 20050308
  Receipt Date: 20041115
  Transmission Date: 20050727
  Serious: Yes (Other)
  Sender: FDA-Public Use
  Company Number: 2004UW23457

PATIENT
  Age: 83 Year
  Sex: Female
  Weight: 62.595 kg

DRUGS (7)
  1. CRESTOR [Suspect]
     Indication: BLOOD CHOLESTEROL INCREASED
     Dosage: 1/2 10MG TABLET
     Dates: start: 20041001
  2. CALCIUM GLUCONATE [Concomitant]
  3. ATENOLOL [Concomitant]
  4. PLAVIX [Concomitant]
  5. ASPIRIN [Concomitant]
  6. AVAPRO [Concomitant]
  7. LEVOXYL [Concomitant]

REACTIONS (3)
  - BALANCE DISORDER [None]
  - FEELING ABNORMAL [None]
  - NAUSEA [None]
